FAERS Safety Report 19748666 (Version 1)
Quarter: 2021Q3

REPORT INFORMATION
  Report Type: Spontaneous
  Country: US (occurrence: US)
  Receive Date: 20210825
  Receipt Date: 20210825
  Transmission Date: 20211014
  Serious: Yes (Hospitalization)
  Sender: FDA-Public Use
  Company Number: None

PATIENT
  Sex: Female
  Weight: 87.3 kg

DRUGS (2)
  1. ZELBORAF [Suspect]
     Active Substance: VEMURAFENIB
  2. ZEJULA [Concomitant]
     Active Substance: NIRAPARIB
     Route: 048
     Dates: start: 20200928

REACTIONS (3)
  - Gastrointestinal disorder [None]
  - Abscess [None]
  - Illness [None]
